FAERS Safety Report 5492156-7 (Version None)
Quarter: 2007Q4

REPORT INFORMATION
  Report Type: 
  Country: None (occurrence: None)
  Receive Date: 20071018
  Receipt Date: 20071003
  Transmission Date: 20080405
  Serious: Yes (Other)
  Sender: FDA-Public Use
  Company Number: SPV1-2007-04402

PATIENT
  Age: 21 Year
  Sex: Female

DRUGS (2)
  1. ADDERALL 10 [Suspect]
     Indication: ATTENTION DEFICIT/HYPERACTIVITY DISORDER
     Dosage: 25 MG, 1X/DAY:QD, ORAL
     Route: 048
     Dates: end: 20071001
  2. ADDERALL 10 [Suspect]
     Indication: ATTENTION DEFICIT/HYPERACTIVITY DISORDER
     Dosage: 25 MG, 1X/DAY:QD, ORAL
     Route: 048
     Dates: start: 20061001

REACTIONS (16)
  - AGGRESSION [None]
  - AGITATION [None]
  - BIPOLAR DISORDER [None]
  - DISTURBANCE IN ATTENTION [None]
  - DRUG ABUSER [None]
  - HALLUCINATION, VISUAL [None]
  - INCORRECT ROUTE OF DRUG ADMINISTRATION [None]
  - IRRITABILITY [None]
  - LOGORRHOEA [None]
  - MENTAL STATUS CHANGES [None]
  - MOOD SWINGS [None]
  - OVERDOSE [None]
  - PARANOIA [None]
  - PERSONALITY CHANGE [None]
  - PSYCHOTIC DISORDER [None]
  - WEIGHT DECREASED [None]
